FAERS Safety Report 8321301-0 (Version None)
Quarter: 2012Q2

REPORT INFORMATION
  Report Type: 
  Country: None (occurrence: None)
  Receive Date: 20120430
  Receipt Date: 20120420
  Transmission Date: 20120825
  Serious: Yes (Other)
  Sender: FDA-Public Use
  Company Number: GB-SANOFI-AVENTIS-2012SA027684

PATIENT
  Age: 70 Year
  Sex: Female

DRUGS (5)
  1. SERTRALINE HYDROCHLORIDE [Concomitant]
     Indication: DEPRESSION
     Dosage: DOSE REPORTED AS 500 (UNITS UNSPECIFIED)
  2. ASPIRIN [Concomitant]
     Dosage: DOSE REPORTED AS 75 (UNITS UNSPECIFIED)
  3. LOSARTAN POTASSIUM [Concomitant]
     Indication: HYPERTENSION
     Dosage: DOSE REPORTED AS 50 (UNITS UNSPECIFIED)
  4. PROCHLORPERAZINE [Concomitant]
     Indication: DIZZINESS
     Dosage: DOSE REPORTED AS 5 UNITS UNSPECIFIED
     Dates: end: 20120309
  5. MULTAQ [Suspect]
     Route: 065
     Dates: start: 20111208, end: 20120309

REACTIONS (2)
  - SUICIDAL IDEATION [None]
  - DEPRESSION [None]
